FAERS Safety Report 23953448 (Version 1)
Quarter: 2024Q2

REPORT INFORMATION
  Report Type: Spontaneous
  Country: US (occurrence: US)
  Receive Date: 20240608
  Receipt Date: 20240608
  Transmission Date: 20240716
  Serious: Yes (Other)
  Sender: FDA-Public Use
  Company Number: US-AUROBINDO-AUR-APL-2024-027521

PATIENT
  Age: 32 Year

DRUGS (1)
  1. METHYLPREDNISOLONE [Suspect]
     Active Substance: METHYLPREDNISOLONE
     Indication: Tubulointerstitial nephritis

REACTIONS (3)
  - Pyelonephritis [Unknown]
  - Renal papillary necrosis [Unknown]
  - Urinary tract obstruction [Unknown]
